FAERS Safety Report 14412229 (Version 1)
Quarter: 2018Q1

REPORT INFORMATION
  Report Type: Spontaneous
  Country: US (occurrence: US)
  Receive Date: 20180119
  Receipt Date: 20180119
  Transmission Date: 20180509
  Serious: Yes (Death, Hospitalization)
  Sender: FDA-Public Use
  Company Number: US-LANNETT COMPANY, INC.-US-2018LAN000014

PATIENT
  Age: 56 Year
  Sex: Male

DRUGS (2)
  1. BACLOFEN (20MG) [Suspect]
     Active Substance: BACLOFEN
     Dosage: 10 MG, TID
     Route: 048
  2. BACLOFEN (20MG) [Suspect]
     Active Substance: BACLOFEN
     Indication: HICCUPS
     Dosage: 5 MG, TID
     Route: 048

REACTIONS (3)
  - Cardiac arrest [Unknown]
  - Pulseless electrical activity [Unknown]
  - Neurotoxicity [Fatal]
